FAERS Safety Report 16494370 (Version 2)
Quarter: 2019Q3

REPORT INFORMATION
  Report Type: Report from Study
  Country: MX (occurrence: MX)
  Receive Date: 20190628
  Receipt Date: 20190713
  Transmission Date: 20191004
  Serious: Yes (Other)
  Sender: FDA-Public Use
  Company Number: PHHY2019MX149441

PATIENT
  Age: 72 Year
  Sex: Male
  Weight: 86 kg

DRUGS (6)
  1. LOBIVON [Concomitant]
     Active Substance: NEBIVOLOL HYDROCHLORIDE
     Indication: BLOOD PRESSURE MEASUREMENT
     Dosage: 0.5 DF (AT NIGHT), QD 5 YEARS AGO
     Route: 048
  2. INSULIN [Concomitant]
     Active Substance: INSULIN NOS
     Indication: DIABETES MELLITUS
     Dosage: 1044 U, QD (25 YEARS AGO)
     Route: 058
  3. ELANTAN [Concomitant]
     Active Substance: ISOSORBIDE MONONITRATE
     Indication: BLOOD PRESSURE MEASUREMENT
     Dosage: 0.5 DF, QD ( IN TH MORNING) (5 YEARS AGO)
     Route: 048
  4. ADEPSIQUE [Concomitant]
     Indication: PRODUCT USED FOR UNKNOWN INDICATION
     Dosage: 1 DF (AT NIGHT), QD (MANY YEARS AGO)
     Route: 048
  5. EXFORGE [Suspect]
     Active Substance: AMLODIPINE BESYLATE\VALSARTAN
     Indication: HYPERTENSION
     Dosage: 1 DF, BID (AMLODIPINE 5 MG, VALSARTAN 160 MG)
     Route: 048
  6. ADECUR [Concomitant]
     Indication: BLOOD PRESSURE MEASUREMENT
     Dosage: 1 DF, BID (ONE TABLET IN THE MORNING AND ONE TABLET AT NIGHT) (5 YEARS AGO)
     Route: 048

REACTIONS (4)
  - Product prescribing error [Unknown]
  - Venous thrombosis [Recovered/Resolved]
  - Inappropriate schedule of product administration [Unknown]
  - Angiopathy [Recovered/Resolved]

NARRATIVE: CASE EVENT DATE: 20190618
